FAERS Safety Report 14056144 (Version 11)
Quarter: 2019Q3

REPORT INFORMATION
  Report Type: Spontaneous
  Country: US (occurrence: US)
  Receive Date: 20171006
  Receipt Date: 20190807
  Transmission Date: 20191004
  Serious: Yes (Hospitalization, Other)
  Sender: FDA-Public Use
  Company Number: PHEH2017US032061

PATIENT
  Sex: Female

DRUGS (2)
  1. ZOFRAN [Suspect]
     Active Substance: ONDANSETRON HYDROCHLORIDE
     Indication: FOETAL EXPOSURE DURING PREGNANCY
     Route: 064
  2. ZOFRAN [Suspect]
     Active Substance: ONDANSETRON HYDROCHLORIDE
     Indication: FOETAL EXPOSURE DURING PREGNANCY
     Route: 064

REACTIONS (24)
  - Chest pain [Not Recovered/Not Resolved]
  - Abscess limb [Unknown]
  - Ovarian cyst [Unknown]
  - Abdominal pain [Unknown]
  - Diarrhoea [Unknown]
  - Cellulitis [Unknown]
  - Weight decreased [Unknown]
  - Fall [Unknown]
  - Jaundice neonatal [Unknown]
  - Dyspnoea [Unknown]
  - Gastrooesophageal reflux disease [Unknown]
  - Upper respiratory tract infection [Unknown]
  - Premature baby [Unknown]
  - Muscle spasms [Unknown]
  - Hyperthyroidism [Unknown]
  - Foetal exposure during pregnancy [Unknown]
  - Sinusitis [Unknown]
  - Transient tachypnoea of the newborn [Unknown]
  - Cardiac murmur [Unknown]
  - Pyrexia [Unknown]
  - Arthropod bite [Unknown]
  - Injury [Unknown]
  - Pollakiuria [Unknown]
  - Rhinorrhoea [Unknown]
